FAERS Safety Report 21373130 (Version 1)
Quarter: 2022Q3

REPORT INFORMATION
  Report Type: Spontaneous
  Country: US (occurrence: US)
  Receive Date: 20220924
  Receipt Date: 20220924
  Transmission Date: 20221026
  Serious: No
  Sender: FDA-Public Use
  Company Number: US-CTI BIOPHARMA-2022US02869

PATIENT
  Age: 65 Year
  Sex: Female
  Weight: 73.488 kg

DRUGS (2)
  1. VONJO [Suspect]
     Active Substance: PACRITINIB
     Indication: Polycythaemia vera
     Dosage: 200 MILLIGRAM, BID
     Route: 048
     Dates: start: 20220518
  2. WARFARIN [Concomitant]
     Active Substance: WARFARIN

REACTIONS (4)
  - Internal haemorrhage [Unknown]
  - Nausea [Unknown]
  - Treatment noncompliance [Unknown]
  - International normalised ratio fluctuation [Unknown]
